FAERS Safety Report 21157927 (Version 1)
Quarter: 2022Q3

REPORT INFORMATION
  Report Type: Report from Study
  Country: PH (occurrence: PH)
  Receive Date: 20220801
  Receipt Date: 20220801
  Transmission Date: 20221027
  Serious: Yes (Hospitalization, Other)
  Sender: FDA-Public Use
  Company Number: PH-PFIZER INC-PV202200029502

PATIENT
  Age: 69 Year
  Sex: Female

DRUGS (1)
  1. BOSUTINIB [Suspect]
     Active Substance: BOSUTINIB
     Indication: Chronic myeloid leukaemia
     Dosage: 200 MG  (2 X 100MG TABLETS)

REACTIONS (3)
  - Dialysis [Unknown]
  - Pneumonia [Unknown]
  - Pulmonary oedema [Unknown]
